FAERS Safety Report 5747550-3 (Version None)
Quarter: 2008Q2

REPORT INFORMATION
  Report Type: 
  Country: None (occurrence: None)
  Receive Date: 20080523
  Receipt Date: 20080512
  Transmission Date: 20081010
  Serious: Yes (Hospitalization)
  Sender: FDA-Public Use
  Company Number: US-ELI_LILLY_AND_COMPANY-US200804004965

PATIENT
  Sex: Female

DRUGS (13)
  1. FORTEO [Suspect]
     Dosage: UNK, UNK
     Dates: start: 20070101
  2. IMDUR [Concomitant]
     Dosage: 30 MG, DAILY (1/D)
     Route: 048
  3. DEMADEX [Concomitant]
     Dosage: 5 MG, QOD
  4. PEPCID [Concomitant]
     Dosage: 20 MG, DAILY (1/D)
  5. ALDACTONE [Concomitant]
     Dosage: 25 MG, WEEKLY (1/W)
  6. CITRUCEL [Concomitant]
  7. COUMADIN [Concomitant]
     Dosage: 3 MG, DAILY (1/D)
  8. ZOCOR [Concomitant]
     Dosage: 20 MG, EACH EVENING
     Route: 048
  9. DILTIAZEM [Concomitant]
     Dosage: 30 MG, EACH EVENING
     Route: 048
  10. COREG [Concomitant]
     Indication: LABILE HYPERTENSION
     Dosage: 12.5 MG, 2/D
     Route: 048
  11. MAGNESIUM [Concomitant]
  12. VITAMIN CAP [Concomitant]
  13. CITRACAL [Concomitant]

REACTIONS (8)
  - ANAEMIA [None]
  - ASTHENIA [None]
  - ASTHMA [None]
  - CARDIAC FAILURE CONGESTIVE [None]
  - CARDIAC VALVE DISEASE [None]
  - HAEMORRHAGE [None]
  - LABILE HYPERTENSION [None]
  - VARICOSE VEIN RUPTURED [None]
